FAERS Safety Report 6011123-8 (Version None)
Quarter: 2008Q4

REPORT INFORMATION
  Report Type: 
  Country: None (occurrence: None)
  Receive Date: 20081218
  Receipt Date: 20081212
  Transmission Date: 20090506
  Serious: Yes (Death, Hospitalization)
  Sender: FDA-Public Use
  Company Number: NZ-NOVOPROD-280849

PATIENT
  Age: 71 Year
  Sex: Female
  Weight: 86 kg

DRUGS (14)
  1. NOVORAPID PENFILL [Suspect]
     Indication: INSULIN-REQUIRING TYPE 2 DIABETES MELLITUS
     Dosage: SLIDING SCALE
     Route: 058
     Dates: start: 20081002, end: 20080101
  2. PREDNISONE TAB [Concomitant]
  3. VENTOLIN [Concomitant]
  4. ROXYTHROMYCIN [Concomitant]
  5. FUNGILIN [Concomitant]
  6. ASPIRIN [Concomitant]
  7. PLENDIL [Concomitant]
  8. EFORMOTEROL FUMARATE [Concomitant]
  9. LOSEC                              /00661201/ [Concomitant]
  10. GLICLAZIDE [Concomitant]
  11. FRUSEMIDE                          /00032601/ [Concomitant]
  12. DILTIAZEM [Concomitant]
  13. FLIXOTIDE                          /00972201/ [Concomitant]
  14. DOXEPIN HCL [Concomitant]

REACTIONS (1)
  - PNEUMONIA [None]
